FAERS Safety Report 4980665-6 (Version None)
Quarter: 2006Q2

REPORT INFORMATION
  Report Type: 
  Country: None (occurrence: None)
  Receive Date: 20060424
  Receipt Date: 20060413
  Transmission Date: 20061013
  Serious: Yes (Hospitalization)
  Sender: FDA-Public Use
  Company Number: IT-MERCK-0604USA02119

PATIENT
  Age: 14 Year
  Sex: Male

DRUGS (1)
  1. DECADRON [Suspect]
     Indication: THROMBOCYTOPENIA
     Route: 048

REACTIONS (3)
  - ASPERGILLOSIS [None]
  - BRAIN ABSCESS [None]
  - CEREBRAL ASPERGILLOSIS [None]
